FAERS Safety Report 8231577-6 (Version None)
Quarter: 2012Q1

REPORT INFORMATION
  Report Type: 
  Country: None (occurrence: None)
  Receive Date: 20120323
  Receipt Date: 20120323
  Transmission Date: 20120608
  Serious: Yes (Death)
  Sender: FDA-Public Use
  Company Number: PHHY2012BE024533

PATIENT
  Sex: Male

DRUGS (11)
  1. BUMETANIDE [Concomitant]
     Dosage: 1 MG, DAILY
  2. STEOVIT [Concomitant]
     Dosage: 1000 MG/ 880 IU.
  3. DUOVENT [Concomitant]
  4. ZOLEDRONOC ACID [Suspect]
     Dosage: 5 MG, UNK
     Route: 042
  5. PLAVIX [Concomitant]
     Dosage: 75 MG, DAILY
  6. RANITIDINE [Concomitant]
     Dosage: 150 MG, BID
  7. PERINDOPRIL ERBUMINE [Concomitant]
     Dosage: 5 MG, DAILY
  8. FLUTICASONE PROPIONATE/SALMETEROL [Concomitant]
     Dosage: 50 UG, BID
  9. ZOCOR [Concomitant]
     Dosage: 20 MG, DAILY
  10. BISOPROLOL FUMARATE [Concomitant]
     Dosage: 5 MG, DAILY
  11. ALDACTONE [Concomitant]
     Dosage: 25 MG, EVERY OTHER DAY

REACTIONS (1)
  - CARDIOVASCULAR DISORDER [None]
